FAERS Safety Report 6982463-0 (Version None)
Quarter: 2010Q3

REPORT INFORMATION
  Report Type: 
  Country: None (occurrence: None)
  Receive Date: 20100914
  Receipt Date: 20100208
  Transmission Date: 20110219
  Serious: No
  Sender: FDA-Public Use
  Company Number: US-PFIZER INC-2010017368

PATIENT
  Sex: Female
  Weight: 60.3 kg

DRUGS (1)
  1. LYRICA [Suspect]
     Indication: SPINAL OPERATION
     Dosage: 50 MG, 3X/DAY
     Route: 048
     Dates: start: 20100107

REACTIONS (3)
  - FAT TISSUE INCREASED [None]
  - WAIST CIRCUMFERENCE INCREASED [None]
  - WEIGHT INCREASED [None]
